FAERS Safety Report 15399146 (Version 2)
Quarter: 2018Q4

REPORT INFORMATION
  Report Type: Spontaneous
  Country: JP (occurrence: JP)
  Receive Date: 20180918
  Receipt Date: 20181009
  Transmission Date: 20190204
  Serious: Yes (Other)
  Sender: FDA-Public Use
  Company Number: JP-ALLERGAN-1845336US

PATIENT
  Age: 5 Decade

DRUGS (1)
  1. URSODEOXYCHOLIC ACID - BP [Suspect]
     Active Substance: URSODIOL
     Indication: CHOLECYSTITIS ACUTE
     Dosage: UNK
     Route: 048

REACTIONS (1)
  - Cholecystectomy [Unknown]
